FAERS Safety Report 13984989 (Version 1)
Quarter: 2017Q3

REPORT INFORMATION
  Report Type: Report from Study
  Country: US (occurrence: US)
  Receive Date: 20170919
  Receipt Date: 20170919
  Transmission Date: 20171128
  Serious: Yes (Death, Hospitalization)
  Sender: FDA-Public Use
  Company Number: US-ACTELION-A-US2017-152328

PATIENT
  Age: 63 Year
  Sex: Female
  Weight: 55.33 kg

DRUGS (7)
  1. FLOLAN [Concomitant]
     Active Substance: EPOPROSTENOL SODIUM
  2. VELETRI [Suspect]
     Active Substance: EPOPROSTENOL
     Indication: PULMONARY HYPERTENSION
     Dosage: 24 NG/KG, PER MIN
     Route: 042
  3. VELETRI [Suspect]
     Active Substance: EPOPROSTENOL
     Dosage: 38 NG/KG, PER MIN
     Route: 042
  4. WARFARIN [Concomitant]
     Active Substance: WARFARIN
  5. LETAIRIS [Concomitant]
     Active Substance: AMBRISENTAN
  6. SILDENAFIL. [Concomitant]
     Active Substance: SILDENAFIL
  7. VELETRI [Suspect]
     Active Substance: EPOPROSTENOL
     Dosage: 41 NG/KG, PER MIN
     Route: 042

REACTIONS (10)
  - Diarrhoea [Unknown]
  - Headache [Recovering/Resolving]
  - Fluid overload [Unknown]
  - Tremor [Unknown]
  - Dyspnoea [Unknown]
  - Nervousness [Unknown]
  - Death [Fatal]
  - Asthenia [Unknown]
  - Pain in jaw [Unknown]
  - Dyspnoea exertional [Unknown]

NARRATIVE: CASE EVENT DATE: 20170910
